FAERS Safety Report 9720876 (Version 1)
Quarter: 2013Q4

REPORT INFORMATION
  Report Type: Spontaneous
  Country: GB (occurrence: GB)
  Receive Date: 20131129
  Receipt Date: 20131129
  Transmission Date: 20140711
  Serious: Yes (Other)
  Sender: FDA-Public Use
  Company Number: PHHY2013GB135895

PATIENT
  Age: 31 Year
  Sex: Female

DRUGS (3)
  1. METHOTREXATE [Suspect]
     Indication: PRODUCT USED FOR UNKNOWN INDICATION
  2. HUMIRA [Suspect]
     Indication: CROHN^S DISEASE
     Dosage: UNK
     Dates: start: 2010, end: 2011
  3. HUMIRA [Suspect]
     Dosage: UNK

REACTIONS (5)
  - Cervical dysplasia [Unknown]
  - Adverse drug reaction [Unknown]
  - Unevaluable event [Unknown]
  - Papilloma viral infection [Unknown]
  - Pneumonia [Unknown]
